FAERS Safety Report 21453428 (Version 2)
Quarter: 2022Q4

REPORT INFORMATION
  Report Type: Spontaneous
  Country: US (occurrence: US)
  Receive Date: 20221013
  Receipt Date: 20221029
  Transmission Date: 20230113
  Serious: Yes (Death, Life-Threatening, Hospitalization)
  Sender: FDA-Public Use
  Company Number: US-TEVA-2022-US-2081679

PATIENT
  Age: 40 Year
  Sex: Male

DRUGS (31)
  1. NOREPINEPHRINE [Suspect]
     Active Substance: NOREPINEPHRINE
     Indication: Lactic acidosis
     Dosage: RECEIVED VIA CENTRAL LINE
     Route: 042
  2. NOREPINEPHRINE [Suspect]
     Active Substance: NOREPINEPHRINE
     Indication: Acute kidney injury
  3. NOREPINEPHRINE [Suspect]
     Active Substance: NOREPINEPHRINE
     Indication: Ischaemic hepatitis
  4. NOREPINEPHRINE [Suspect]
     Active Substance: NOREPINEPHRINE
     Indication: Respiratory acidosis
  5. NOREPINEPHRINE [Suspect]
     Active Substance: NOREPINEPHRINE
     Indication: Rhabdomyolysis
  6. NOREPINEPHRINE [Suspect]
     Active Substance: NOREPINEPHRINE
     Indication: Septic shock
  7. NOREPINEPHRINE [Suspect]
     Active Substance: NOREPINEPHRINE
     Indication: Troponin increased
  8. PROPOFOL [Suspect]
     Active Substance: PROPOFOL
     Indication: Lactic acidosis
     Dosage: RECEIVED VIA CENTRAL LINE
     Route: 042
  9. PROPOFOL [Suspect]
     Active Substance: PROPOFOL
     Indication: Acute kidney injury
  10. PROPOFOL [Suspect]
     Active Substance: PROPOFOL
     Indication: Ischaemic hepatitis
  11. PROPOFOL [Suspect]
     Active Substance: PROPOFOL
     Indication: Respiratory acidosis
  12. PROPOFOL [Suspect]
     Active Substance: PROPOFOL
     Indication: Rhabdomyolysis
  13. PROPOFOL [Suspect]
     Active Substance: PROPOFOL
     Indication: Septic shock
  14. PROPOFOL [Suspect]
     Active Substance: PROPOFOL
     Indication: Troponin increased
  15. PIPER METHYSTICUM ROOT [Suspect]
     Active Substance: PIPER METHYSTICUM ROOT
     Indication: Product used for unknown indication
     Route: 048
  16. FENTANYL [Suspect]
     Active Substance: FENTANYL
     Indication: Lactic acidosis
     Dosage: RECEIVED VIA CENTRAL LINE
     Route: 042
  17. FENTANYL [Suspect]
     Active Substance: FENTANYL
     Indication: Acute kidney injury
  18. FENTANYL [Suspect]
     Active Substance: FENTANYL
     Indication: Ischaemic hepatitis
  19. FENTANYL [Suspect]
     Active Substance: FENTANYL
     Indication: Respiratory acidosis
  20. FENTANYL [Suspect]
     Active Substance: FENTANYL
     Indication: Rhabdomyolysis
  21. FENTANYL [Suspect]
     Active Substance: FENTANYL
     Indication: Septic shock
  22. FENTANYL [Suspect]
     Active Substance: FENTANYL
     Indication: Troponin increased
  23. VASOPRESSIN [Suspect]
     Active Substance: VASOPRESSIN
     Indication: Lactic acidosis
     Dosage: RECEIVED VIA CENTRAL LINE
     Route: 042
  24. VASOPRESSIN [Suspect]
     Active Substance: VASOPRESSIN
     Indication: Acute kidney injury
  25. VASOPRESSIN [Suspect]
     Active Substance: VASOPRESSIN
     Indication: Ischaemic hepatitis
  26. VASOPRESSIN [Suspect]
     Active Substance: VASOPRESSIN
     Indication: Respiratory acidosis
  27. VASOPRESSIN [Suspect]
     Active Substance: VASOPRESSIN
     Indication: Rhabdomyolysis
  28. VASOPRESSIN [Suspect]
     Active Substance: VASOPRESSIN
     Indication: Septic shock
  29. VASOPRESSIN [Suspect]
     Active Substance: VASOPRESSIN
     Indication: Troponin increased
  30. AMITRIPTYLINE [Concomitant]
     Active Substance: AMITRIPTYLINE
     Indication: Depression
     Route: 065
  31. AMITRIPTYLINE [Concomitant]
     Active Substance: AMITRIPTYLINE
     Indication: Anxiety

REACTIONS (12)
  - Acute hepatic failure [Fatal]
  - Lactic acidosis [Unknown]
  - Respiratory acidosis [Unknown]
  - Rhabdomyolysis [Unknown]
  - Septic shock [Unknown]
  - Troponin increased [Unknown]
  - Acute kidney injury [Unknown]
  - Hypovolaemic shock [Unknown]
  - Retroperitoneal haemorrhage [Unknown]
  - Intestinal ischaemia [Unknown]
  - Ischaemic hepatitis [Unknown]
  - Drug ineffective [Unknown]
